FAERS Safety Report 4599534-9 (Version None)
Quarter: 2005Q1

REPORT INFORMATION
  Report Type: 
  Country: None (occurrence: None)
  Receive Date: 20050127
  Receipt Date: 20041015
  Transmission Date: 20050727
  Serious: No
  Sender: FDA-Public Use
  Company Number: USA041081338

PATIENT

DRUGS (1)
  1. STRATTERA [Suspect]

REACTIONS (1)
  - DRUG SCREEN POSITIVE [None]
